FAERS Safety Report 9433740 (Version 1)
Quarter: 2013Q3

REPORT INFORMATION
  Report Type: Spontaneous
  Country: US (occurrence: US)
  Receive Date: 20130731
  Receipt Date: 20130731
  Transmission Date: 20140515
  Serious: No
  Sender: FDA-Public Use
  Company Number: US-009507513-1307USA017288

PATIENT
  Sex: Female

DRUGS (1)
  1. COSOPT PF [Suspect]
     Indication: GLAUCOMA
     Dosage: UNK UNK, BID
     Route: 047
     Dates: start: 2013

REACTIONS (10)
  - Eyelid skin dryness [Recovering/Resolving]
  - Erythema of eyelid [Recovering/Resolving]
  - Eyelid oedema [Recovering/Resolving]
  - Eyelid margin crusting [Recovering/Resolving]
  - Eye pruritus [Recovering/Resolving]
  - Eye irritation [Recovering/Resolving]
  - Eyelids pruritus [Recovering/Resolving]
  - Eyelid irritation [Recovering/Resolving]
  - Ocular hyperaemia [Recovering/Resolving]
  - Eye burns [Unknown]
